FAERS Safety Report 12610613 (Version 1)
Quarter: 2016Q3

REPORT INFORMATION
  Report Type: Not Available
  Country: IT (occurrence: IT)
  Receive Date: 20160801
  Receipt Date: 20160801
  Transmission Date: 20161109
  Serious: Yes (Hospitalization)
  Sender: FDA-Public Use
  Company Number: IT-PURDUE-GBR-2016-0039293

PATIENT
  Age: 84 Year
  Sex: Female

DRUGS (6)
  1. ALDACTAZIDE [Concomitant]
     Active Substance: HYDROCHLOROTHIAZIDE\SPIRONOLACTONE
     Dosage: UNK
     Route: 048
  2. COUMADIN [Interacting]
     Active Substance: WARFARIN SODIUM
     Indication: ATRIAL FIBRILLATION
     Dosage: 1 UNIT, PRN
     Route: 048
     Dates: start: 20160101, end: 20160415
  3. TARGIN COMPRESSA A RILASCIO PROLUNGATO CONTIENE 20MG/10MG [Suspect]
     Active Substance: NALOXONE HYDROCHLORIDE\OXYCODONE HYDROCHLORIDE
     Indication: FRACTURE PAIN
     Dosage: UNK, DAILY
     Route: 048
     Dates: start: 20160410, end: 20160415
  4. LANOXIN [Concomitant]
     Active Substance: DIGOXIN
  5. DICLOFENAC [Interacting]
     Active Substance: DICLOFENAC
     Indication: FRACTURE PAIN
     Dosage: UNK
     Route: 030
     Dates: start: 20160413, end: 20160415
  6. LIDOCAINE. [Concomitant]
     Active Substance: LIDOCAINE
     Dosage: UNK
     Dates: start: 20160413, end: 20160415

REACTIONS (4)
  - Anaemia [Recovered/Resolved]
  - Drug interaction [Recovered/Resolved]
  - Hypocoagulable state [Recovered/Resolved]
  - Acute kidney injury [Recovered/Resolved]

NARRATIVE: CASE EVENT DATE: 20160415
